FAERS Safety Report 24677977 (Version 2)
Quarter: 2024Q4

REPORT INFORMATION
  Report Type: Spontaneous
  Country: US (occurrence: US)
  Receive Date: 20241129
  Receipt Date: 20241230
  Transmission Date: 20250115
  Serious: No
  Sender: HETERO
  Company Number: US-HETERO-HET2024US04349

PATIENT
  Age: 54 Year
  Sex: Female

DRUGS (1)
  1. DIMETHYL FUMARATE [Suspect]
     Active Substance: DIMETHYL FUMARATE
     Indication: Product used for unknown indication
     Dosage: 240 MILLIGRAM, BID
     Route: 048
     Dates: start: 202101

REACTIONS (2)
  - Flushing [Unknown]
  - Product substitution issue [Unknown]

NARRATIVE: CASE EVENT DATE: 20241102
